FAERS Safety Report 5795632-2 (Version None)
Quarter: 2008Q2

REPORT INFORMATION
  Report Type: 
  Country: None (occurrence: None)
  Receive Date: 20080630
  Receipt Date: 20080620
  Transmission Date: 20081010
  Serious: Yes (Hospitalization)
  Sender: FDA-Public Use
  Company Number: DE-MERCK-0711DEU00036

PATIENT
  Age: 6 Month
  Sex: Female

DRUGS (7)
  1. SINGULAIR [Suspect]
     Indication: INFANTILE ASTHMA
     Route: 048
     Dates: start: 20070901, end: 20071001
  2. SINGULAIR [Suspect]
     Route: 048
     Dates: start: 20071101
  3. SINGULAIR [Suspect]
     Indication: ASPIRATION
     Route: 048
     Dates: start: 20070901, end: 20071001
  4. SINGULAIR [Suspect]
     Route: 048
     Dates: start: 20071101
  5. IPRATROPIUM BROMIDE [Concomitant]
     Dates: start: 20070901
  6. ALBUTEROL SULFATE [Concomitant]
     Dates: start: 20070901
  7. BUDESONIDE [Concomitant]
     Dates: start: 20070901

REACTIONS (5)
  - BRONCHITIS CHRONIC [None]
  - DERMATITIS DIAPER [None]
  - INCORRECT ROUTE OF DRUG ADMINISTRATION [None]
  - INJURY [None]
  - ORAL CANDIDIASIS [None]
